FAERS Safety Report 11374612 (Version 1)
Quarter: 2015Q3

REPORT INFORMATION
  Report Type: Report from Study
  Country: US (occurrence: US)
  Receive Date: 20150813
  Receipt Date: 20150813
  Transmission Date: 20151125
  Serious: No
  Sender: FDA-Public Use
  Company Number: US-AMGEN-USASL2015080821

PATIENT
  Age: 51 Year
  Sex: Male

DRUGS (3)
  1. HYDROCODONE [Concomitant]
     Active Substance: HYDROCODONE
     Dosage: UNK
  2. ETODOLAC. [Concomitant]
     Active Substance: ETODOLAC
     Dosage: UNK
  3. ENBREL [Suspect]
     Active Substance: ETANERCEPT
     Indication: RHEUMATOID ARTHRITIS
     Dosage: UNK UNK, QWK
     Route: 065
     Dates: start: 2015, end: 201504

REACTIONS (2)
  - Drug effect incomplete [Unknown]
  - Pain [Unknown]

NARRATIVE: CASE EVENT DATE: 2015
